FAERS Safety Report 6370005-2 (Version None)
Quarter: 2009Q3

REPORT INFORMATION
  Report Type: 
  Country: None (occurrence: None)
  Receive Date: 20090923
  Receipt Date: 20070618
  Transmission Date: 20100115
  Serious: No
  Sender: FDA-Public Use
  Company Number: US-ASTRAZENECA-2006UW08159

PATIENT
  Age: 51 Year
  Sex: Female
  Weight: 82.1 kg

DRUGS (5)
  1. SEROQUEL [Suspect]
     Indication: DEPRESSION
     Dosage: 100-400 MG
     Route: 048
     Dates: start: 20001115
  2. SEROQUEL [Suspect]
     Route: 048
     Dates: end: 20060101
  3. RISPERDAL [Concomitant]
  4. KLONOPIN [Concomitant]
  5. LAMICTAL [Concomitant]

REACTIONS (2)
  - DIABETES MELLITUS [None]
  - WEIGHT INCREASED [None]
